FAERS Safety Report 5785154-7 (Version None)
Quarter: 2008Q2

REPORT INFORMATION
  Report Type: 
  Country: None (occurrence: None)
  Receive Date: 20080605
  Receipt Date: 20080512
  Transmission Date: 20081010
  Serious: No
  Sender: FDA-Public Use
  Company Number: A0724084A

PATIENT

DRUGS (1)
  1. ALLI [Suspect]

REACTIONS (10)
  - CARDIAC DISORDER [None]
  - DRUG INEFFECTIVE [None]
  - GASTROINTESTINAL DISORDER [None]
  - HEART RATE INCREASED [None]
  - HUNGER [None]
  - PALPITATIONS [None]
  - POLLAKIURIA [None]
  - VENTRICULAR EXTRASYSTOLES [None]
  - WEIGHT FLUCTUATION [None]
  - WEIGHT INCREASED [None]
